FAERS Safety Report 13272559 (Version 7)
Quarter: 2017Q4

REPORT INFORMATION
  Report Type: Spontaneous
  Country: US (occurrence: US)
  Receive Date: 20170227
  Receipt Date: 20171013
  Transmission Date: 20180320
  Serious: Yes (Hospitalization)
  Sender: FDA-Public Use
  Company Number: US-PFIZER INC-2017077854

PATIENT
  Age: 73 Year
  Sex: Female
  Weight: 89 kg

DRUGS (10)
  1. ACETAMINOPHEN. [Concomitant]
     Active Substance: ACETAMINOPHEN
     Indication: JOINT INJURY
     Dosage: 1000 MG, AS NEEDED
  2. GLUCOSAMINE CHONDROITIN COMPLEX [Concomitant]
     Active Substance: CHONDROITIN SULFATE (BOVINE)\GLUCOSAMINE HYDROCHLORIDE
     Dosage: UNK
     Dates: start: 201701
  3. GLUCOSAMINE CHONDROITIN SULFATE [Concomitant]
     Indication: ARTHRITIS
     Dosage: UNK([GLUCOSAMINE 1500 MG/ CHONDROITIN 1200 MG]) PER DAY
  4. IBRANCE [Suspect]
     Active Substance: PALBOCICLIB
     Dosage: 125 MG, CYCLIC(FOR 21 DAYS ON AND 7 DAYS OFF)
     Route: 048
     Dates: start: 201702
  5. ZYRTEC [Concomitant]
     Active Substance: CETIRIZINE HYDROCHLORIDE
     Dosage: UNK
     Dates: start: 2015
  6. KIRKLAND SIGNATURE ALLER TEC ALLERGY [Concomitant]
     Active Substance: CETIRIZINE HYDROCHLORIDE
     Indication: DRUG HYPERSENSITIVITY
     Dosage: 10 MG, DAILY
  7. TRIAMCINOLONE [Concomitant]
     Active Substance: TRIAMCINOLONE
     Dosage: UNK, AS NEEDED
  8. TYLENOL [Concomitant]
     Active Substance: ACETAMINOPHEN
     Dosage: UNK
     Dates: start: 2016
  9. PROCHLORPERAZINE MALEATE. [Concomitant]
     Active Substance: PROCHLORPERAZINE MALEATE
     Dosage: UNK
  10. IBRANCE [Suspect]
     Active Substance: PALBOCICLIB
     Indication: BREAST CANCER FEMALE
     Dosage: 125 MG, ONCE DAILY (QD)
     Route: 048
     Dates: start: 20170205

REACTIONS (7)
  - Fatigue [Recovered/Resolved]
  - Muscle spasms [Recovered/Resolved]
  - Product use in unapproved indication [Unknown]
  - Gait disturbance [Recovered/Resolved]
  - Pruritus [Not Recovered/Not Resolved]
  - Mass [Not Recovered/Not Resolved]
  - Thirst [Recovered/Resolved]

NARRATIVE: CASE EVENT DATE: 2017
